FAERS Safety Report 13913858 (Version 1)
Quarter: 2017Q3

REPORT INFORMATION
  Report Type: Spontaneous
  Country: US (occurrence: US)
  Receive Date: 20170829
  Receipt Date: 20170829
  Transmission Date: 20171127
  Serious: No
  Sender: FDA-Public Use
  Company Number: US-PFIZER INC-2017368937

PATIENT
  Age: 50 Year
  Sex: Female
  Weight: 83 kg

DRUGS (8)
  1. LYRICA [Suspect]
     Active Substance: PREGABALIN
     Dosage: 75 MG, ONCE IN THE MORNING AND TWO IN THE AFTERNOON
     Dates: end: 201708
  2. TURMERIC [Suspect]
     Active Substance: HERBALS\TURMERIC
     Dosage: UNK
  3. BIOTIN [Suspect]
     Active Substance: BIOTIN
     Dosage: UNK
  4. LYRICA [Suspect]
     Active Substance: PREGABALIN
     Indication: FIBROMYALGIA
     Dosage: 75 MG, 2X/DAY
  5. FISH OIL [Suspect]
     Active Substance: FISH OIL
     Dosage: UNK
  6. VITAMIN D [Suspect]
     Active Substance: CHOLECALCIFEROL
     Dosage: UNK
  7. GLUCOSAMINE [Suspect]
     Active Substance: GLUCOSAMINE
     Indication: ARTHROPATHY
     Dosage: UNK
  8. LYRICA [Suspect]
     Active Substance: PREGABALIN
     Dosage: 75 MG, ONCE IN THE MORNING AND TWO IN THE AFTERNOON

REACTIONS (1)
  - Alopecia [Not Recovered/Not Resolved]

NARRATIVE: CASE EVENT DATE: 2017
